FAERS Safety Report 15071831 (Version 1)
Quarter: 2018Q2

REPORT INFORMATION
  Report Type: Report from Study
  Country: US (occurrence: US)
  Receive Date: 20180626
  Receipt Date: 20180626
  Transmission Date: 20180711
  Serious: No
  Sender: FDA-Public Use
  Company Number: US-AMGEN-USASL2017009654

PATIENT
  Age: 77 Year
  Sex: Female

DRUGS (5)
  1. PROLIA [Suspect]
     Active Substance: DENOSUMAB
     Indication: ABDOMINAL PAIN
     Dosage: UNK
     Route: 065
  2. PROLIA [Suspect]
     Active Substance: DENOSUMAB
     Indication: CHEST PAIN
  3. PROLIA [Suspect]
     Active Substance: DENOSUMAB
     Indication: POLYARTHRITIS
  4. PROLIA [Suspect]
     Active Substance: DENOSUMAB
     Indication: OSTEOPOROSIS
  5. PROLIA [Suspect]
     Active Substance: DENOSUMAB
     Indication: BACK PAIN

REACTIONS (1)
  - Off label use [Unknown]
